FAERS Safety Report 4677377-5 (Version None)
Quarter: 2005Q2

REPORT INFORMATION
  Report Type: 
  Country: None (occurrence: None)
  Receive Date: 20050531
  Receipt Date: 20050524
  Transmission Date: 20051028
  Serious: Yes (Hospitalization)
  Sender: FDA-Public Use
  Company Number: 200514793GDDC

PATIENT
  Age: 16 Year
  Sex: Male

DRUGS (2)
  1. DESMOPRESSIN [Suspect]
     Indication: ENURESIS
     Route: 045
  2. PROPIVERINE [Concomitant]
     Indication: ENURESIS

REACTIONS (4)
  - ENCEPHALOPATHY [None]
  - EPILEPSY [None]
  - HYPONATRAEMIA [None]
  - OVERDOSE [None]
